FAERS Safety Report 6377348-7 (Version None)
Quarter: 2009Q3

REPORT INFORMATION
  Report Type: 
  Country: None (occurrence: None)
  Receive Date: 20090923
  Receipt Date: 20090923
  Transmission Date: 20100115
  Serious: No
  Sender: FDA-Public Use
  Company Number: None

PATIENT
  Age: 34 Year
  Sex: Female
  Weight: 73 kg

DRUGS (5)
  1. LORAZEPAM [Suspect]
     Indication: ANXIETY
     Dosage: 2 MG IV X 1
     Route: 042
     Dates: start: 20090709
  2. HEPARIN [Concomitant]
  3. CLINDA [Concomitant]
  4. BENADRYL [Concomitant]
  5. RANITIDINE [Concomitant]

REACTIONS (2)
  - PRURITUS [None]
  - SOMNOLENCE [None]
